FAERS Safety Report 24794698 (Version 1)
Quarter: 2024Q4

REPORT INFORMATION
  Report Type: Spontaneous
  Country: US (occurrence: None)
  Receive Date: 20241230
  Receipt Date: 20241230
  Transmission Date: 20250114
  Serious: Yes (Disabling, Other)
  Sender: Public
  Company Number: None

PATIENT
  Age: 38 Year
  Sex: Male
  Weight: 78.75 kg

DRUGS (2)
  1. FLUTICASONE PROPIONATE [Suspect]
     Active Substance: FLUTICASONE PROPIONATE
     Indication: Nasal congestion
     Dates: start: 20241110, end: 20241127
  2. FINASTERIDE [Concomitant]
     Active Substance: FINASTERIDE

REACTIONS (8)
  - Panic attack [None]
  - Chills [None]
  - Seizure [None]
  - Muscle twitching [None]
  - Blood homocysteine increased [None]
  - Cortisol increased [None]
  - Anxiety [None]
  - Feeling abnormal [None]

NARRATIVE: CASE EVENT DATE: 20241127
